FAERS Safety Report 4322170-6 (Version None)
Quarter: 2004Q1

REPORT INFORMATION
  Report Type: 
  Country: None (occurrence: None)
  Receive Date: 20040319
  Receipt Date: 20040309
  Transmission Date: 20041129
  Serious: Yes (Hospitalization)
  Sender: FDA-Public Use
  Company Number: 163-20785-04010717

PATIENT
  Age: 74 Year
  Sex: Female

DRUGS (4)
  1. THALOMID [Suspect]
     Indication: MULTIPLE MYELOMA
     Dosage: 50-100MG, QD, ORAL
     Route: 048
     Dates: start: 20031024, end: 20040110
  2. DEXAMETHASONE [Suspect]
     Indication: MULTIPLE MYELOMA
  3. ASPIRIN [Concomitant]
  4. LIPITOR [Concomitant]

REACTIONS (11)
  - CONFUSIONAL STATE [None]
  - DIZZINESS [None]
  - HAEMOGLOBIN DECREASED [None]
  - MALIGNANT NEOPLASM PROGRESSION [None]
  - MULTIPLE MYELOMA [None]
  - PYREXIA [None]
  - RED BLOOD CELL SEDIMENTATION RATE INCREASED [None]
  - SINUS TACHYCARDIA [None]
  - SPEECH DISORDER [None]
  - VISUAL DISTURBANCE [None]
  - WHITE BLOOD CELL COUNT INCREASED [None]
